FAERS Safety Report 8603973 (Version 3)
Quarter: 2012Q4

REPORT INFORMATION
  Report Type: Report from Study
  Country: AU (occurrence: AU)
  Receive Date: 20120608
  Receipt Date: 20121102
  Transmission Date: 20130627
  Serious: Yes (Hospitalization)
  Sender: FDA-Public Use
  Company Number: AU-BIOGENIDEC-2012BI020018

PATIENT
  Age: 60 Year
  Sex: Female

DRUGS (3)
  1. TYSABRI [Suspect]
     Indication: RELAPSING-REMITTING MULTIPLE SCLEROSIS
     Route: 042
     Dates: start: 20090428, end: 20111116
  2. ZOLOFT [Concomitant]
     Dates: start: 19940101
  3. OSTELIN [Concomitant]
     Indication: PROPHYLAXIS
     Dates: start: 20070101

REACTIONS (3)
  - Nausea [Unknown]
  - Diarrhoea [Unknown]
  - Colitis [Recovered/Resolved]
